FAERS Safety Report 20672448 (Version 1)
Quarter: 2022Q2

REPORT INFORMATION
  Report Type: Spontaneous
  Country: US (occurrence: US)
  Receive Date: 20220405
  Receipt Date: 20220405
  Transmission Date: 20220721
  Serious: Yes (Other)
  Sender: FDA-Public Use
  Company Number: US-BRISTOL-MYERS SQUIBB COMPANY-2022-014243

PATIENT
  Age: 68 Year
  Sex: Male
  Weight: 86.64 kg

DRUGS (1)
  1. REVLIMID [Suspect]
     Active Substance: LENALIDOMIDE
     Indication: Plasma cell myeloma
     Dosage: FREQ-2 WEEKS, 1 WEEK OFF
     Route: 048
     Dates: start: 20220127

REACTIONS (3)
  - Neuropathy peripheral [Unknown]
  - Constipation [Unknown]
  - Prescribed underdose [Unknown]
